FAERS Safety Report 10636645 (Version 1)
Quarter: 2014Q4

REPORT INFORMATION
  Report Type: Spontaneous
  Country: US (occurrence: None)
  Receive Date: 20141203
  Receipt Date: 20141203
  Transmission Date: 20150529
  Serious: No
  Sender: FDA-Public Use
  Company Number: None

PATIENT

DRUGS (1)
  1. EPHEDRINE SULFATE. [Suspect]
     Active Substance: EPHEDRINE SULFATE
     Indication: HYPOTENSION
     Route: 042
     Dates: start: 20141117

REACTIONS (3)
  - Product quality issue [None]
  - Drug ineffective [None]
  - No therapeutic response [None]

NARRATIVE: CASE EVENT DATE: 20141117
